FAERS Safety Report 8329712-4 (Version None)
Quarter: 2012Q2

REPORT INFORMATION
  Report Type: 
  Country: None (occurrence: None)
  Receive Date: 20120502
  Receipt Date: 20120424
  Transmission Date: 20120825
  Serious: Yes (Life-Threatening, Hospitalization)
  Sender: FDA-Public Use
  Company Number: GB-GLAXOSMITHKLINE-B0797747A

PATIENT
  Age: 79 Year
  Sex: Female

DRUGS (14)
  1. EXELON [Concomitant]
  2. LAMICTAL [Suspect]
  3. PAROXETINE [Concomitant]
  4. ACETAMINOPHEN [Concomitant]
  5. VALPROMIDE [Concomitant]
  6. ISOPHANE INSULIN [Concomitant]
  7. CALCIUM + VITAMIN D3 [Concomitant]
  8. LEVOTHYROXINE SODIUM [Concomitant]
  9. FUROSEMIDE [Concomitant]
  10. BIMATOPROST AND TIMOLOL MALEATE [Concomitant]
  11. CLOZAPINE [Suspect]
     Route: 048
     Dates: start: 20120103
  12. CLOZAPINE [Suspect]
     Route: 048
     Dates: start: 20120213, end: 20120313
  13. AMLODIPINE [Concomitant]
  14. POTASSIUM CHLORIDE [Concomitant]

REACTIONS (5)
  - FALL [None]
  - SINUSITIS [None]
  - PYREXIA [None]
  - HAEMOGLOBIN DECREASED [None]
  - AGRANULOCYTOSIS [None]
